FAERS Safety Report 9306046 (Version 1)
Quarter: 2013Q1

REPORT INFORMATION
  Report Type: Spontaneous
  Country: US (occurrence: None)
  Receive Date: 20130305
  Receipt Date: 20130305
  Transmission Date: 20140127
  Serious: Yes (Life-Threatening, Hospitalization)
  Sender: FDA-Public Use
  Company Number: DEP_00847_2013

PATIENT
  Sex: Female
  Weight: 49.44 kg

DRUGS (4)
  1. GRALISE [Suspect]
     Indication: NEURALGIA
     Dosage: 1X/24 HOURS
     Route: 048
     Dates: start: 20121227, end: 20121229
  2. GRALISE [Suspect]
     Indication: OFF LABEL USE
     Dosage: 1X/24 HOURS
     Route: 048
     Dates: start: 20121227, end: 20121229
  3. LEVOXYL [Concomitant]
  4. TIMOLOL [Concomitant]

REACTIONS (1)
  - Anaphylactic reaction [None]
